FAERS Safety Report 8646336 (Version 5)
Quarter: 2013Q4

REPORT INFORMATION
  Report Type: Report from Study
  Country: JP (occurrence: JP)
  Receive Date: 20120702
  Receipt Date: 20131212
  Transmission Date: 20140711
  Serious: Yes (Hospitalization)
  Sender: FDA-Public Use
  Company Number: JP-ROCHE-1057027

PATIENT
  Age: 40 Year
  Sex: Female
  Weight: 69 kg

DRUGS (22)
  1. OMALIZUMAB [Suspect]
     Indication: ASTHMA
     Route: 058
     Dates: start: 20120127
  2. OMALIZUMAB [Suspect]
     Route: 058
     Dates: start: 2012
  3. OMALIZUMAB [Suspect]
     Route: 058
     Dates: start: 20120209
  4. OMALIZUMAB [Suspect]
     Route: 058
     Dates: start: 20120223
  5. OMALIZUMAB [Suspect]
     Route: 058
     Dates: start: 20120308, end: 20120308
  6. CICLOSPORIN [Suspect]
     Indication: ASTHMA
     Route: 048
     Dates: end: 20120413
  7. IPD [Concomitant]
  8. SYMBICORT [Concomitant]
  9. PULMICORT [Concomitant]
  10. HOKUNALIN [Concomitant]
  11. SINGULAIR [Concomitant]
  12. ALESION [Concomitant]
  13. RIZABEN [Concomitant]
  14. PREDNISOLONE [Concomitant]
  15. PROCATEROL HYDROCHLORIDE [Concomitant]
  16. PARIET [Concomitant]
     Route: 065
     Dates: end: 20120413
  17. MYSLEE [Concomitant]
  18. DEPAS [Concomitant]
  19. CLOSTRIDIUM BUTYRICUM [Concomitant]
  20. FLUITRAN [Concomitant]
     Route: 065
     Dates: end: 20120322
  21. HIRUDOID (JAPAN) [Concomitant]
     Route: 065
     Dates: end: 20120407
  22. BAKTAR [Concomitant]
     Route: 065
     Dates: end: 20120413

REACTIONS (2)
  - Anaphylactic reaction [Recovered/Resolved]
  - Human anti-human antibody test [Recovering/Resolving]
